FAERS Safety Report 7966321-0 (Version None)
Quarter: 2011Q4

REPORT INFORMATION
  Report Type: 
  Country: None (occurrence: None)
  Receive Date: 20111208
  Receipt Date: 20111205
  Transmission Date: 20120403
  Serious: Yes (Hospitalization)
  Sender: FDA-Public Use
  Company Number: US-ROXANE LABORATORIES, INC.-2011-RO-01747RO

PATIENT
  Age: 83 Year
  Sex: Male
  Weight: 84 kg

DRUGS (1)
  1. PREDNISONE TAB [Suspect]
     Indication: CHRONIC LYMPHOCYTIC LEUKAEMIA
     Dosage: 60 MG
     Route: 048
     Dates: start: 20110825, end: 20111016

REACTIONS (2)
  - ATRIAL FIBRILLATION [None]
  - PNEUMONIA [None]
